FAERS Safety Report 7111449-0 (Version None)
Quarter: 2010Q4

REPORT INFORMATION
  Report Type: 
  Country: None (occurrence: None)
  Receive Date: 20101118
  Receipt Date: 20100216
  Transmission Date: 20110411
  Serious: No
  Sender: FDA-Public Use
  Company Number: US-PFIZER INC-2010020383

PATIENT
  Sex: Male
  Weight: 54.4 kg

DRUGS (3)
  1. ZYVOX [Suspect]
     Indication: SKIN INFECTION
     Dosage: 600 MG, 2X/DAY
     Route: 048
     Dates: start: 20100201, end: 20100212
  2. TAMSULOSIN HYDROCHLORIDE [Concomitant]
     Indication: PROSTATOMEGALY
     Dosage: 0.4 MG, 2X/DAY
     Route: 048
  3. AVODART [Concomitant]
     Indication: PROSTATOMEGALY
     Dosage: 5 MG, 1X/DAY
     Route: 048

REACTIONS (2)
  - HEADACHE [None]
  - SOMNOLENCE [None]
